FAERS Safety Report 18711746 (Version 1)
Quarter: 2021Q1

REPORT INFORMATION
  Report Type: Spontaneous
  Country: US (occurrence: US)
  Receive Date: 20210107
  Receipt Date: 20210107
  Transmission Date: 20210419
  Serious: No
  Sender: FDA-Public Use
  Company Number: US-HORIZON-2021HZN00017

PATIENT
  Age: 65 Year
  Sex: Female

DRUGS (2)
  1. KRYSTEXXA [Suspect]
     Active Substance: PEGLOTICASE
     Indication: GOUT
     Dates: start: 202010
  2. ANAKINRA [Concomitant]
     Active Substance: ANAKINRA

REACTIONS (2)
  - Urticaria [Recovering/Resolving]
  - Therapeutic product effect decreased [Unknown]
